FAERS Safety Report 7972886-5 (Version None)
Quarter: 2011Q4

REPORT INFORMATION
  Report Type: 
  Country: None (occurrence: None)
  Receive Date: 20111213
  Receipt Date: 20111205
  Transmission Date: 20120403
  Serious: Yes (Other)
  Sender: FDA-Public Use
  Company Number: FR-ROCHE-1008450

PATIENT
  Sex: Female
  Weight: 80 kg

DRUGS (2)
  1. RANIBIZUMAB [Suspect]
     Indication: DIABETIC RETINAL OEDEMA
     Dosage: DOSE: 10 MG/ML, TEMPORARILY INTERRUPTED
     Route: 050
     Dates: start: 20110805, end: 20111006
  2. INSULIN [Concomitant]
     Dates: start: 20000101

REACTIONS (1)
  - SLEEP APNOEA SYNDROME [None]
